FAERS Safety Report 5669354-2 (Version None)
Quarter: 2008Q1

REPORT INFORMATION
  Report Type: 
  Country: None (occurrence: None)
  Receive Date: 20080317
  Receipt Date: 20080304
  Transmission Date: 20080703
  Serious: Yes (Hospitalization, Disabling)
  Sender: FDA-Public Use
  Company Number: US-MERCK-0712USA07472

PATIENT
  Age: 65 Year
  Sex: Female

DRUGS (5)
  1. FOSAMAX [Suspect]
     Indication: OSTEOPENIA
     Route: 048
     Dates: start: 19970301, end: 20040101
  2. FOSAMAX [Suspect]
     Route: 048
     Dates: start: 19970301, end: 20040101
  3. FOSAMAX [Suspect]
     Route: 048
     Dates: start: 19970301, end: 20040101
  4. [THERAPY UNSPECIFIED] [Concomitant]
     Route: 065
  5. SYNTHROID [Concomitant]
     Route: 065
     Dates: start: 19740101

REACTIONS (13)
  - CHEST PAIN [None]
  - CONTUSION [None]
  - DENTAL NECROSIS [None]
  - DYSPEPSIA [None]
  - FAILURE OF IMPLANT [None]
  - FALL [None]
  - GASTRITIS [None]
  - GINGIVAL BLEEDING [None]
  - HYPERLIPIDAEMIA [None]
  - JAW DISORDER [None]
  - OBESITY [None]
  - TOOTH DISORDER [None]
  - TOOTH FRACTURE [None]
